FAERS Safety Report 4413210-4 (Version None)
Quarter: 2004Q3

REPORT INFORMATION
  Report Type: 
  Country: None (occurrence: None)
  Receive Date: 20040730
  Receipt Date: 20040730
  Transmission Date: 20050211
  Serious: Yes (Hospitalization)
  Sender: FDA-Public Use
  Company Number: None

PATIENT
  Age: 46 Year
  Sex: Female

DRUGS (1)
  1. LITHIUM [Suspect]

REACTIONS (5)
  - ASPIRATION [None]
  - COMA [None]
  - HYPOXIA [None]
  - OVERDOSE [None]
  - RESPIRATORY FAILURE [None]
